FAERS Safety Report 6604642-4 (Version None)
Quarter: 2010Q1

REPORT INFORMATION
  Report Type: 
  Country: None (occurrence: None)
  Receive Date: 20100226
  Receipt Date: 20100219
  Transmission Date: 20100710
  Serious: Yes (Death)
  Sender: FDA-Public Use
  Company Number: FR-ROCHE-657813

PATIENT
  Sex: Female
  Weight: 61 kg

DRUGS (7)
  1. AVASTIN [Suspect]
     Dosage: DOSE: 600 UNIT
     Route: 042
     Dates: start: 20090610, end: 20090907
  2. TAXOL [Concomitant]
     Dosage: DOSE: 130 UNIT
     Route: 042
     Dates: start: 20090610, end: 20090908
  3. LOW MOLECULAR WEIGHT HEPARIN [Concomitant]
     Indication: DRUG USE FOR UNKNOWN INDICATION
  4. SOLU-MEDROL [Concomitant]
     Dosage: DOSE: 40 UNIT
     Route: 042
     Dates: start: 20090826
  5. LASIX [Concomitant]
     Dosage: DOSE: 40 UNIT
     Route: 042
     Dates: start: 20090826
  6. DURAGESIC-100 [Concomitant]
     Dosage: DRUG: DUROGESIC 75
     Route: 058
     Dates: start: 20090826
  7. TENORMIN [Concomitant]
     Dosage: DOSE: 50 UNIT
     Route: 048

REACTIONS (2)
  - HAEMOPTYSIS [None]
  - VOMITING [None]
